FAERS Safety Report 5663127-2 (Version None)
Quarter: 2008Q1

REPORT INFORMATION
  Report Type: 
  Country: None (occurrence: None)
  Receive Date: 20080313
  Receipt Date: 20080307
  Transmission Date: 20080703
  Serious: Yes (Hospitalization)
  Sender: FDA-Public Use
  Company Number: B0511525A

PATIENT
  Sex: Female
  Weight: 48 kg

DRUGS (1)
  1. ARIXTRA [Suspect]
     Indication: DEEP VEIN THROMBOSIS
     Dosage: 5MG PER DAY
     Route: 058
     Dates: start: 20080117, end: 20080120

REACTIONS (3)
  - BLISTER [None]
  - HAEMATOMA [None]
  - SKIN INFECTION [None]
